FAERS Safety Report 12263324 (Version 1)
Quarter: 2016Q2

REPORT INFORMATION
  Report Type: Spontaneous
  Country: US (occurrence: None)
  Receive Date: 20160412
  Receipt Date: 20160412
  Transmission Date: 20160815
  Serious: Yes (Hospitalization)
  Sender: FDA-Public Use
  Company Number: None

PATIENT
  Age: 23 Year
  Sex: Female
  Weight: 63.5 kg

DRUGS (1)
  1. SILVER NITRATE. [Suspect]
     Active Substance: SILVER NITRATE
     Indication: SKIN DISORDER
     Route: 061

REACTIONS (4)
  - Application site erythema [None]
  - Application site exfoliation [None]
  - Application site pain [None]
  - Application site necrosis [None]

NARRATIVE: CASE EVENT DATE: 20160301
